FAERS Safety Report 7180567-3 (Version None)
Quarter: 2010Q4

REPORT INFORMATION
  Report Type: 
  Country: None (occurrence: None)
  Receive Date: 20101221
  Receipt Date: 20101214
  Transmission Date: 20110411
  Serious: No
  Sender: FDA-Public Use
  Company Number: US-PFIZER INC-2010171996

PATIENT
  Sex: Female
  Weight: 64 kg

DRUGS (8)
  1. ESTRING [Suspect]
     Indication: VULVOVAGINAL DRYNESS
     Dosage: 2 MG, UNK
     Dates: start: 20101208
  2. ESTRING [Suspect]
     Indication: VAGINAL DISORDER
  3. VALSARTAN [Concomitant]
     Dosage: UNK
  4. AMLODIPINE [Concomitant]
     Dosage: UNK
  5. MONTELUKAST [Concomitant]
     Dosage: UNK
  6. ADVAIR [Concomitant]
     Dosage: 250/50 MCG
  7. PRAVACHOL [Concomitant]
     Dosage: UNK
  8. LEXAPRO [Concomitant]
     Dosage: UNK

REACTIONS (1)
  - VULVOVAGINAL PAIN [None]
